FAERS Safety Report 21714430 (Version 1)
Quarter: 2022Q4

REPORT INFORMATION
  Report Type: Spontaneous
  Country: AU (occurrence: AU)
  Receive Date: 20221212
  Receipt Date: 20221212
  Transmission Date: 20230112
  Serious: Yes (Hospitalization, Other)
  Sender: FDA-Public Use
  Company Number: AU-BoehringerIngelheim-2022-BI-206469

PATIENT

DRUGS (1)
  1. CLONIDINE [Suspect]
     Active Substance: CLONIDINE
     Indication: Product used for unknown indication
     Dosage: 10MCG/ML SUSPENSION, DOSAGE: 5ML, WHICH IS EQUAL TO 50 MCG AT NIGHT?FORM: COMPOUNDED CLONIDINE LIQUI

REACTIONS (6)
  - Altered state of consciousness [Unknown]
  - Delirium [Unknown]
  - Product preparation error [Unknown]
  - Toxicity to various agents [Unknown]
  - Accidental overdose [Unknown]
  - Off label use [Unknown]
